FAERS Safety Report 16191912 (Version 2)
Quarter: 2019Q2

REPORT INFORMATION
  Report Type: Spontaneous
  Country: US (occurrence: US)
  Receive Date: 20190412
  Receipt Date: 20190430
  Transmission Date: 20190711
  Serious: Yes (Other)
  Sender: FDA-Public Use
  Company Number: US-SUNOVION-2019SUN001349

PATIENT
  Age: 78 Year
  Sex: Female
  Weight: 63.49 kg

DRUGS (2)
  1. LONHALA MAGNAIR [Suspect]
     Active Substance: GLYCOPYRROLATE
     Indication: CHRONIC OBSTRUCTIVE PULMONARY DISEASE
     Dosage: 25 ?G, BID
     Route: 055
     Dates: start: 20190326
  2. BREO ELLIPTA [Concomitant]
     Active Substance: FLUTICASONE FUROATE\VILANTEROL TRIFENATATE
     Dosage: UNK
     Dates: start: 20190326

REACTIONS (8)
  - Thrombosis [Recovered/Resolved]
  - Peripheral swelling [Recovered/Resolved]
  - Neck pain [Unknown]
  - Feeling abnormal [Recovered/Resolved]
  - Muscular weakness [Recovered/Resolved]
  - Cough [Not Recovered/Not Resolved]
  - Hot flush [Recovered/Resolved]
  - Presyncope [Recovered/Resolved]

NARRATIVE: CASE EVENT DATE: 201903
